FAERS Safety Report 7082669-9 (Version None)
Quarter: 2010Q4

REPORT INFORMATION
  Report Type: 
  Country: None (occurrence: None)
  Receive Date: 20101104
  Receipt Date: 20101028
  Transmission Date: 20110411
  Serious: Yes (Other)
  Sender: FDA-Public Use
  Company Number: DE-SP-2010-06265

PATIENT
  Age: 71 Year

DRUGS (2)
  1. BCG  THERAPEUTICS [Suspect]
     Indication: BLADDER CANCER
     Dosage: NOT REPORTED
     Route: 043
  2. BISOPROLOL [Concomitant]

REACTIONS (1)
  - TUBERCULOSIS BLADDER [None]
